APPROVED DRUG PRODUCT: CLARITIN
Active Ingredient: LORATADINE
Strength: 10MG
Dosage Form/Route: CAPSULE;ORAL
Application: N021952 | Product #001
Applicant: BAYER HEALTHCARE LLC
Approved: Jun 16, 2008 | RLD: Yes | RS: Yes | Type: OTC